FAERS Safety Report 10004669 (Version 1)
Quarter: 2014Q1

REPORT INFORMATION
  Report Type: Spontaneous
  Country: US (occurrence: US)
  Receive Date: 20140312
  Receipt Date: 20140312
  Transmission Date: 20141002
  Serious: Yes (Hospitalization)
  Sender: FDA-Public Use
  Company Number: US-GLAXOSMITHKLINE-A0793296A

PATIENT
  Age: 47 Year
  Sex: Female

DRUGS (5)
  1. LAMICTAL [Suspect]
     Indication: BIPOLAR DISORDER
     Dosage: 400MG PER DAY
     Route: 048
     Dates: start: 2008
  2. SEROQUEL [Suspect]
     Dosage: 50MG PER DAY
     Dates: start: 200904, end: 20090610
  3. WELLBUTRIN SR [Suspect]
     Indication: MENTAL DISORDER
     Dosage: 150MG UNKNOWN
     Dates: start: 20110512
  4. VENTOLIN HFA [Suspect]
     Indication: PRODUCT USED FOR UNKNOWN INDICATION
     Route: 065
     Dates: start: 20100817
  5. METFORMIN [Concomitant]

REACTIONS (5)
  - Transfusion [Unknown]
  - Liver disorder [Unknown]
  - Rash [Unknown]
  - Contusion [Unknown]
  - Urticaria [Unknown]
